FAERS Safety Report 16944179 (Version 1)
Quarter: 2019Q4

REPORT INFORMATION
  Report Type: Report from Study
  Country: DE (occurrence: DE)
  Receive Date: 20191022
  Receipt Date: 20191022
  Transmission Date: 20200122
  Serious: Yes (Hospitalization, Other)
  Sender: FDA-Public Use
  Company Number: DE-BRISTOL-MYERS SQUIBB COMPANY-BMS-2019-052047

PATIENT
  Age: 69 Year
  Sex: Male

DRUGS (4)
  1. NIVOLUMAB [Suspect]
     Active Substance: NIVOLUMAB
     Indication: MALIGNANT MELANOMA
     Dosage: 95 MILLIGRAM, Q3WK
     Route: 042
     Dates: start: 20190409
  2. NIVOLUMAB [Suspect]
     Active Substance: NIVOLUMAB
     Indication: PRODUCT USED FOR UNKNOWN INDICATION
     Dosage: 97 MILLIGRAM, Q3WK
     Route: 042
     Dates: start: 20190409, end: 20190611
  3. IPILIMUMAB [Suspect]
     Active Substance: IPILIMUMAB
     Indication: PRODUCT USED FOR UNKNOWN INDICATION
     Dosage: 291, Q3WK
     Route: 065
     Dates: start: 20190409, end: 20190611
  4. IPILIMUMAB [Suspect]
     Active Substance: IPILIMUMAB
     Indication: MALIGNANT MELANOMA
     Dosage: 285 Q3WK
     Route: 065
     Dates: start: 20190409

REACTIONS (4)
  - Colitis [Recovered/Resolved]
  - Bronchitis [Recovered/Resolved]
  - Renal impairment [Recovered/Resolved]
  - Influenza like illness [Recovered/Resolved]

NARRATIVE: CASE EVENT DATE: 20190416
